FAERS Safety Report 7335971-7 (Version None)
Quarter: 2011Q1

REPORT INFORMATION
  Report Type: 
  Country: None (occurrence: None)
  Receive Date: 20110228
  Receipt Date: 20110207
  Transmission Date: 20110831
  Serious: Yes (Other)
  Sender: FDA-Public Use
  Company Number: 2011SP005473

PATIENT
  Sex: Female
  Weight: 75 kg

DRUGS (2)
  1. IMPLANON [Suspect]
     Indication: CONTRACEPTION
     Dates: start: 20020501
  2. IMPLANON [Suspect]
     Indication: CONTRACEPTION
     Dates: start: 20050801

REACTIONS (8)
  - INCORRECT DRUG ADMINISTRATION DURATION [None]
  - DRUG EXPOSURE DURING PREGNANCY [None]
  - DEVICE DISLOCATION [None]
  - INFERTILITY [None]
  - HAEMORRHAGE [None]
  - ABORTION SPONTANEOUS [None]
  - INCORRECT DOSE ADMINISTERED [None]
  - PREGNANCY WITH IMPLANT CONTRACEPTIVE [None]
